FAERS Safety Report 16697862 (Version 1)
Quarter: 2019Q3

REPORT INFORMATION
  Report Type: Spontaneous
  Country: US (occurrence: US)
  Receive Date: 20190628
  Receipt Date: 20190628
  Transmission Date: 20191004
  Serious: Yes (Hospitalization, Disabling, Other)
  Sender: FDA-Public Use
  Company Number: None

PATIENT
  Age: 55 Year
  Sex: Female
  Weight: 75.3 kg

DRUGS (5)
  1. BENADRYL [Concomitant]
     Active Substance: DIPHENHYDRAMINE HYDROCHLORIDE
  2. ARIPIPRAZOLE TAB 2.5MG ABILIFY PO AM [Suspect]
     Active Substance: ARIPIPRAZOLE
     Indication: SCHIZOTYPAL PERSONALITY DISORDER
     Dosage: ?          QUANTITY:SPLIT TO = 2.5MG;?
     Route: 048
     Dates: start: 20190314, end: 20190413
  3. CRANBERRIES EXTRACT [Concomitant]
  4. MELATONIN [Concomitant]
     Active Substance: MELATONIN
  5. VITAMIN B [Concomitant]
     Active Substance: VITAMIN B

REACTIONS (4)
  - Bladder disorder [None]
  - Renal disorder [None]
  - Product prescribing issue [None]
  - Dystonia [None]

NARRATIVE: CASE EVENT DATE: 201903
